FAERS Safety Report 24052671 (Version 1)
Quarter: 2024Q3

REPORT INFORMATION
  Report Type: Report from Study
  Country: US (occurrence: US)
  Receive Date: 20240705
  Receipt Date: 20240705
  Transmission Date: 20241017
  Serious: Yes (Hospitalization, Other)
  Sender: ABBVIE
  Company Number: US-ABBVIE-5823376

PATIENT
  Sex: Male

DRUGS (2)
  1. SKYRIZI [Suspect]
     Active Substance: RISANKIZUMAB-RZAA
     Indication: Psoriasis
     Dosage: LAST ADMIN DATE: 2024
     Route: 058
     Dates: start: 20240321
  2. SKYRIZI [Suspect]
     Active Substance: RISANKIZUMAB-RZAA
     Route: 058
     Dates: start: 20240513

REACTIONS (4)
  - Syncope [Recovering/Resolving]
  - Hepatic steatosis [Unknown]
  - Head injury [Unknown]
  - Echocardiogram abnormal [Unknown]

NARRATIVE: CASE EVENT DATE: 20240101
